FAERS Safety Report 24039193 (Version 1)
Quarter: 2024Q3

REPORT INFORMATION
  Report Type: Spontaneous
  Country: CN (occurrence: CN)
  Receive Date: 20240702
  Receipt Date: 20240702
  Transmission Date: 20241016
  Serious: Yes (Hospitalization)
  Sender: ABBVIE
  Company Number: CN-ABBVIE-5821819

PATIENT
  Age: 80 Year
  Sex: Female
  Weight: 56 kg

DRUGS (2)
  1. VENETOCLAX [Suspect]
     Active Substance: VENETOCLAX
     Indication: Acute myeloid leukaemia
     Dosage: 400 MILLIGRAM
     Route: 048
     Dates: start: 20240530, end: 20240626
  2. DIMETHICONE [Suspect]
     Active Substance: DIMETHICONE
     Indication: Acute myeloid leukaemia
     Dosage: TABLET
     Route: 048
     Dates: start: 20240530, end: 20240617

REACTIONS (4)
  - Myelosuppression [Recovering/Resolving]
  - Nausea [Recovering/Resolving]
  - Vomiting [Recovering/Resolving]
  - Decreased appetite [Recovering/Resolving]

NARRATIVE: CASE EVENT DATE: 20240613
